FAERS Safety Report 7853455-4 (Version None)
Quarter: 2011Q4

REPORT INFORMATION
  Report Type: 
  Country: None (occurrence: None)
  Receive Date: 20111026
  Receipt Date: 20111018
  Transmission Date: 20120403
  Serious: Yes (Hospitalization)
  Sender: FDA-Public Use
  Company Number: US-GILEAD-2011-0045289

PATIENT
  Sex: Female

DRUGS (17)
  1. OXYGEN [Concomitant]
  2. FOLIC ACID [Concomitant]
  3. PREDNISONE [Concomitant]
  4. RECLAST [Concomitant]
  5. MIRTAZAPINE [Concomitant]
  6. CALCIUM CARBONATE [Concomitant]
  7. VITAMIN B12 NOS [Concomitant]
  8. LETAIRIS [Suspect]
     Indication: PULMONARY HYPERTENSION
     Dosage: 10 MG, UNK
     Route: 048
     Dates: start: 20090916
  9. LETAIRIS [Suspect]
     Indication: RHEUMATOID ARTHRITIS
  10. METHOTREXATE [Concomitant]
  11. VITAMIN D [Concomitant]
  12. NITROSTAT [Concomitant]
  13. ASPIRIN [Concomitant]
  14. LETAIRIS [Suspect]
     Indication: CONNECTIVE TISSUE DISORDER
  15. ADVAIR DISKUS 100/50 [Concomitant]
  16. PRAVASTATIN [Concomitant]
  17. LORTAB [Concomitant]

REACTIONS (2)
  - BRONCHITIS [None]
  - RENAL FAILURE CHRONIC [None]
